FAERS Safety Report 18633374 (Version 1)
Quarter: 2020Q4

REPORT INFORMATION
  Report Type: Report from Study
  Country: US (occurrence: US)
  Receive Date: 20201218
  Receipt Date: 20201218
  Transmission Date: 20210114
  Serious: No
  Sender: FDA-Public Use
  Company Number: US-REGENERON PHARMACEUTICALS, INC.-2019-66566

PATIENT

DRUGS (3)
  1. EYLEA [Suspect]
     Active Substance: AFLIBERCEPT
     Indication: DIABETIC RETINAL OEDEMA
     Dosage: 2 UNK, UNK
     Route: 031
     Dates: start: 20181003, end: 20181003
  2. EYLEA [Suspect]
     Active Substance: AFLIBERCEPT
     Indication: DIABETIC RETINOPATHY
     Dosage: 2 MG (0.05 ML), EVERY 4 WEEKS FOR THE FIRST 3 MONTHS
     Route: 031
     Dates: start: 2018
  3. EYLEA [Suspect]
     Active Substance: AFLIBERCEPT
     Dosage: 2 MG (0.05 ML), EVERY 4 WEEKS FOR THE FIRST 3 MONTHS
     Route: 031
     Dates: start: 201912, end: 201912

REACTIONS (1)
  - Product dose omission issue [Unknown]

NARRATIVE: CASE EVENT DATE: 20191112
